FAERS Safety Report 24231327 (Version 2)
Quarter: 2024Q3

REPORT INFORMATION
  Report Type: Spontaneous
  Country: US (occurrence: US)
  Receive Date: 20240821
  Receipt Date: 20240902
  Transmission Date: 20241017
  Serious: Yes (Death, Life-Threatening, Hospitalization, Other)
  Sender: AUROBINDO
  Company Number: US-MLMSERVICE-20240801-PI149556-00218-1

PATIENT
  Age: 71 Year
  Sex: Male

DRUGS (1)
  1. METHOTREXATE [Suspect]
     Active Substance: METHOTREXATE
     Indication: Psoriatic arthropathy
     Dosage: 5 MILLIGRAM, EVERY WEEK
     Route: 065

REACTIONS (8)
  - Acute kidney injury [Fatal]
  - Acute respiratory failure [Fatal]
  - Myelosuppression [Fatal]
  - Pancytopenia [Fatal]
  - Stomatitis [Fatal]
  - Blood alkaline phosphatase increased [Fatal]
  - Vitamin B12 deficiency [Fatal]
  - Macrocytosis [Fatal]
